FAERS Safety Report 7118884-5 (Version None)
Quarter: 2010Q4

REPORT INFORMATION
  Report Type: 
  Country: None (occurrence: None)
  Receive Date: 20101123
  Receipt Date: 20101119
  Transmission Date: 20110411
  Serious: Yes (Death, Other)
  Sender: FDA-Public Use
  Company Number: IE-MEDIMMUNE-MEDI-0008401

PATIENT
  Sex: Male
  Weight: 4 kg

DRUGS (1)
  1. SYNAGIS [Suspect]
     Indication: RESPIRATORY SYNCYTIAL VIRUS INFECTION
     Route: 030
     Dates: start: 20081101, end: 20090301

REACTIONS (2)
  - DEATH [None]
  - RESPIRATORY SYNCYTIAL VIRUS INFECTION [None]
